FAERS Safety Report 5285013-2 (Version None)
Quarter: 2007Q2

REPORT INFORMATION
  Report Type: 
  Country: None (occurrence: None)
  Receive Date: 20070403
  Receipt Date: 20070327
  Transmission Date: 20071010
  Serious: Yes (Hospitalization)
  Sender: FDA-Public Use
  Company Number: DE-PFIZER INC-2007010642

PATIENT
  Sex: Male
  Weight: 144 kg

DRUGS (5)
  1. LYRICA [Suspect]
     Indication: INTERVERTEBRAL DISC PROTRUSION
     Route: 048
     Dates: start: 20061001, end: 20070201
  2. MORPHINE SULFATE [Concomitant]
     Dates: start: 20061001, end: 20070201
  3. BETA BLOCKING AGENTS [Concomitant]
  4. METOPROLOL SUCCINATE [Concomitant]
     Dosage: DAILY DOSE:95MG
  5. METFORMIN HCL [Concomitant]
     Dosage: DAILY DOSE:90MG
     Dates: start: 19990101

REACTIONS (1)
  - ASTHMA [None]
